FAERS Safety Report 16681958 (Version 2)
Quarter: 2019Q4

REPORT INFORMATION
  Report Type: Report from Study
  Country: US (occurrence: US)
  Receive Date: 20190808
  Receipt Date: 20191101
  Transmission Date: 20200122
  Serious: Yes (Hospitalization, Other)
  Sender: FDA-Public Use
  Company Number: US-JNJFOC-20190726889

PATIENT
  Age: 77 Year
  Sex: Male
  Weight: 119 kg

DRUGS (22)
  1. IBRUTINIB [Suspect]
     Active Substance: IBRUTINIB
     Route: 048
     Dates: start: 20190401, end: 20190624
  2. MARIJUANA [Concomitant]
     Active Substance: CANNABIS SATIVA SUBSP. INDICA TOP
  3. STOOL SOFTENER (DOCUSATE) [Concomitant]
     Active Substance: DOCUSATE
     Route: 048
  4. ELIQUIS [Suspect]
     Active Substance: APIXABAN
     Indication: PRODUCT USED FOR UNKNOWN INDICATION
     Route: 048
     Dates: start: 20190620
  5. FLUDROCORTISONE [Concomitant]
     Active Substance: FLUDROCORTISONE
  6. SIMVASTATIN. [Concomitant]
     Active Substance: SIMVASTATIN
     Route: 048
  7. VITAMIN D [Concomitant]
     Active Substance: VITAMIN D NOS
  8. IBRUTINIB [Suspect]
     Active Substance: IBRUTINIB
     Indication: CHRONIC LYMPHOCYTIC LEUKAEMIA
     Dosage: 420 MG, QD
     Route: 048
     Dates: start: 201903
  9. GLIPIZIDE. [Concomitant]
     Active Substance: GLIPIZIDE
     Route: 048
  10. NORCO [Concomitant]
     Active Substance: ACETAMINOPHEN\HYDROCODONE BITARTRATE
     Indication: PAIN
     Dosage: 10-325 MG PRN (THREE TIMES A DAY)
     Route: 048
  11. METOPROLOL. [Concomitant]
     Active Substance: METOPROLOL
     Route: 048
  12. METFORMIN [Concomitant]
     Active Substance: METFORMIN HYDROCHLORIDE
     Route: 048
  13. MORPHINE [Concomitant]
     Active Substance: MORPHINE
     Indication: PAIN
     Route: 048
  14. CALCIUM CARBONATE. [Concomitant]
     Active Substance: CALCIUM CARBONATE
  15. MAGNESIUM [Concomitant]
     Active Substance: MAGNESIUM
     Route: 048
  16. IBRUTINIB [Suspect]
     Active Substance: IBRUTINIB
     Route: 048
     Dates: start: 20190404
  17. MULTIVITAMINS                      /00116001/ [Concomitant]
     Active Substance: VITAMINS
  18. GLIPIZIDE. [Concomitant]
     Active Substance: GLIPIZIDE
     Route: 048
  19. LISINOPRIL. [Concomitant]
     Active Substance: LISINOPRIL
  20. PIOGLITAZONE. [Concomitant]
     Active Substance: PIOGLITAZONE
     Route: 048
  21. VITAMIN C [Concomitant]
     Active Substance: ASCORBIC ACID
     Route: 048
  22. CYCLOBENZAPRINE. [Concomitant]
     Active Substance: CYCLOBENZAPRINE
     Indication: PAIN
     Dosage: TID, PRN
     Route: 048

REACTIONS (8)
  - Thrombocytopenia [Unknown]
  - Contusion [Unknown]
  - White blood cell count decreased [Unknown]
  - Type 2 diabetes mellitus [Unknown]
  - Cardiac operation [Unknown]
  - Cardiac failure acute [Unknown]
  - Scrotal oedema [Unknown]
  - Scrotal haematoma [Not Recovered/Not Resolved]

NARRATIVE: CASE EVENT DATE: 201906
